FAERS Safety Report 7450963-5 (Version None)
Quarter: 2011Q2

REPORT INFORMATION
  Report Type: 
  Country: None (occurrence: None)
  Receive Date: 20110429
  Receipt Date: 20110429
  Transmission Date: 20111010
  Serious: Yes (Death)
  Sender: FDA-Public Use
  Company Number: None

PATIENT
  Age: 75 Year
  Sex: Female
  Weight: 111.5 kg

DRUGS (17)
  1. ENOXAPARIN [Suspect]
     Indication: ATRIAL FIBRILLATION
     Dosage: 30MG EVERY 12 HOURS SQ
     Route: 058
     Dates: start: 20110331, end: 20110402
  2. BISOPROLOL-HYDROCLOROTHIAZIDE [Concomitant]
  3. NOVOLOG [Concomitant]
  4. PANTOPRAZOLE [Concomitant]
  5. ENOXAPARIN [Suspect]
     Indication: ATRIAL FIBRILLATION
     Dosage: 80MG EVERY 12 HOURS SQ
     Route: 058
     Dates: start: 20110331, end: 20110402
  6. DIPHENHYDRAMINE [Concomitant]
  7. MILK OF MAG [Concomitant]
  8. LEVAQUIN [Concomitant]
  9. METHYLPEDNISOLONE SODIUM SUCCINATE [Concomitant]
  10. ONDANSETRON [Concomitant]
  11. RAMIPRIL [Concomitant]
  12. ALBUTEROL SULFATE AND IPRATROPIUM BROMIDE [Concomitant]
  13. ASPIRIN [Concomitant]
  14. SIMVASTATIN [Concomitant]
  15. ACETAMINOPHEN [Concomitant]
  16. LANTUS [Concomitant]
  17. LORAZEPAM [Concomitant]

REACTIONS (6)
  - EXTRAVASATION [None]
  - HYPOTENSION [None]
  - MALAISE [None]
  - CARDIAC ARREST [None]
  - RETROPERITONEAL HAEMORRHAGE [None]
  - ABDOMINAL PAIN [None]
